FAERS Safety Report 9408412 (Version 1)
Quarter: 2013Q3

REPORT INFORMATION
  Report Type: Spontaneous
  Country: FR (occurrence: None)
  Receive Date: 20130716
  Receipt Date: 20130716
  Transmission Date: 20140515
  Serious: Yes (Hospitalization, Other)
  Sender: FDA-Public Use
  Company Number: ACO_37173_2013

PATIENT
  Age: 59 Year
  Sex: Male

DRUGS (5)
  1. FAMPYRA (DALFAMPRIDINE) TABLET, 10MG [Suspect]
     Indication: GAIT DISTURBANCE
     Route: 048
     Dates: start: 20130430, end: 20130619
  2. UVEDOSE (COLECALCIFEROL) [Concomitant]
  3. CERIS (TROSPIUM CHLORIDE) [Concomitant]
  4. JOSIR (TAMSULOSIN HYDROCHLORIDE) [Concomitant]
  5. LIORESAL (BACLOFEN) [Concomitant]

REACTIONS (1)
  - Spinal compression fracture [None]
